FAERS Safety Report 9894499 (Version 1)
Quarter: 2014Q1

REPORT INFORMATION
  Report Type: Report from Study
  Country: BR (occurrence: BR)
  Receive Date: 20140213
  Receipt Date: 20140213
  Transmission Date: 20141002
  Serious: Yes (Death, Hospitalization, Other)
  Sender: FDA-Public Use
  Company Number: PHHY2014BR017033

PATIENT
  Sex: Female
  Weight: 69 kg

DRUGS (5)
  1. DIOVAN [Suspect]
  2. DIMORF [Concomitant]
     Indication: PAIN
     Dosage: UNK UKN, UNK
     Dates: start: 201401
  3. DECADRON [Concomitant]
     Indication: PROPHYLAXIS
     Dosage: UNK UKN, UNK
     Dates: end: 201312
  4. OXYGEN [Concomitant]
     Indication: PAIN
  5. HYDANTAL [Concomitant]
     Indication: HEAD DISCOMFORT

REACTIONS (4)
  - Respiratory failure [Fatal]
  - Lung neoplasm malignant [Unknown]
  - Metastases to central nervous system [Unknown]
  - Terminal state [Unknown]
